FAERS Safety Report 8565938-2 (Version None)
Quarter: 2012Q3

REPORT INFORMATION
  Report Type: 
  Country: None (occurrence: None)
  Receive Date: 20120803
  Receipt Date: 20110825
  Transmission Date: 20120928
  Serious: No
  Sender: FDA-Public Use
  Company Number: US-ABBOTT-11P-163-0849160-00

PATIENT
  Sex: Male

DRUGS (2)
  1. NIASPAN [Suspect]
     Indication: PRODUCT USED FOR UNKNOWN INDICATION
     Dosage: INTERRUPTED
     Dates: start: 20100101
  2. NIASPAN [Suspect]
     Dosage: NOT REPORTED
     Dates: start: 20110601

REACTIONS (3)
  - DYSPNOEA [None]
  - COUGH [None]
  - THROAT IRRITATION [None]
